FAERS Safety Report 10565188 (Version 2)
Quarter: 2014Q4

REPORT INFORMATION
  Report Type: Spontaneous
  Country: JP (occurrence: None)
  Receive Date: 20141103
  Receipt Date: 20141124
  Transmission Date: 20150529
  Serious: Yes (Other)
  Sender: FDA-Public Use
  Company Number: VAL_03563_2014

PATIENT
  Sex: Male

DRUGS (1)
  1. LOPRESSOR [Suspect]
     Active Substance: METOPROLOL TARTRATE
     Indication: PRODUCT USED FOR UNKNOWN INDICATION
     Dosage: MATERNAL DOSE: 60 MG TRANSPLACENTAL
     Route: 064

REACTIONS (6)
  - Foetal exposure during pregnancy [None]
  - Low birth weight baby [None]
  - Cardiovascular disorder [None]
  - Foetal distress syndrome [None]
  - Caesarean section [None]
  - Maternal drugs affecting foetus [None]
